FAERS Safety Report 18206797 (Version 2)
Quarter: 2020Q4

REPORT INFORMATION
  Report Type: Spontaneous
  Country: US (occurrence: US)
  Receive Date: 20200828
  Receipt Date: 20201109
  Transmission Date: 20210113
  Serious: Yes (Life-Threatening, Hospitalization, Other)
  Sender: FDA-Public Use
  Company Number: US-ACCORD-196186

PATIENT
  Age: 26 Year
  Sex: Male
  Weight: 92.07 kg

DRUGS (5)
  1. HALOPERIDOL. [Concomitant]
     Active Substance: HALOPERIDOL
     Indication: AGITATION
     Dates: start: 201911
  2. MIDAZOLAM. [Concomitant]
     Active Substance: MIDAZOLAM
     Indication: SEIZURE
     Route: 030
  3. LEVETIRACETAM. [Suspect]
     Active Substance: LEVETIRACETAM
     Indication: EPILEPSY
     Dosage: 4G OF IV AS A LOADING DOSE AND WAS CONTINUED WITH 1000 MG IV EVERY 12 HOURS
     Route: 042
     Dates: start: 20191128, end: 20191204
  4. KETAMINE [Concomitant]
     Active Substance: KETAMINE
     Indication: AGITATION
     Dates: start: 201911
  5. MIDAZOLAM. [Concomitant]
     Active Substance: MIDAZOLAM
     Indication: SEIZURE
     Route: 030
     Dates: start: 201911

REACTIONS (2)
  - Renal tubular necrosis [Recovered/Resolved]
  - Acute kidney injury [Recovered/Resolved]
